FAERS Safety Report 6372192-9 (Version None)
Quarter: 2009Q3

REPORT INFORMATION
  Report Type: 
  Country: None (occurrence: None)
  Receive Date: 20090924
  Receipt Date: 20071116
  Transmission Date: 20100115
  Serious: Yes (Other)
  Sender: FDA-Public Use
  Company Number: US-ASTRAZENECA-2006UW08501

PATIENT
  Age: 38 Year
  Sex: Male
  Weight: 142.9 kg

DRUGS (19)
  1. SEROQUEL [Suspect]
     Indication: DEPRESSION
     Route: 048
     Dates: start: 20030201, end: 20051001
  2. SEROQUEL [Suspect]
     Indication: BIPOLAR DISORDER
     Route: 048
     Dates: start: 20030201, end: 20051001
  3. SEROQUEL [Suspect]
     Indication: SLEEP DISORDER
     Route: 048
     Dates: start: 20030201, end: 20051001
  4. SEROQUEL [Suspect]
     Indication: MENTAL DISORDER
     Route: 048
     Dates: start: 20030201, end: 20051001
  5. SEROQUEL [Suspect]
     Route: 048
     Dates: start: 20030201, end: 20051001
  6. SEROQUEL [Suspect]
     Route: 048
     Dates: start: 20030201, end: 20051001
  7. SEROQUEL [Suspect]
     Route: 048
     Dates: start: 20030201, end: 20051001
  8. SEROQUEL [Suspect]
     Route: 048
     Dates: start: 20030201, end: 20051001
  9. SEROQUEL [Suspect]
     Dosage: 25 MG - 50 MG
     Route: 048
     Dates: start: 20040227
  10. SEROQUEL [Suspect]
     Dosage: 25 MG - 50 MG
     Route: 048
     Dates: start: 20040227
  11. SEROQUEL [Suspect]
     Dosage: 25 MG - 50 MG
     Route: 048
     Dates: start: 20040227
  12. SEROQUEL [Suspect]
     Dosage: 25 MG - 50 MG
     Route: 048
     Dates: start: 20040227
  13. ABILIFY [Concomitant]
  14. THORAZINE [Concomitant]
  15. PROZAC [Concomitant]
     Indication: AFFECTIVE DISORDER
     Dosage: 20 MG - 40 MG
     Route: 048
     Dates: start: 20011025
  16. METFORMIN HCL [Concomitant]
     Dosage: 500 MG - 2000 MG
     Route: 048
     Dates: start: 20040225
  17. BUPROPION HCL [Concomitant]
     Route: 048
     Dates: start: 20061020
  18. GLIPIZIDE [Concomitant]
     Route: 048
     Dates: start: 20061020
  19. GEODON [Concomitant]
     Dates: start: 20061020

REACTIONS (12)
  - BLOOD CHOLESTEROL INCREASED [None]
  - BLOOD TRIGLYCERIDES INCREASED [None]
  - DIABETES MELLITUS [None]
  - DIABETES MELLITUS INADEQUATE CONTROL [None]
  - DIABETIC COMA [None]
  - DIABETIC COMPLICATION [None]
  - ESSENTIAL HYPERTENSION [None]
  - HYPERCHOLESTEROLAEMIA [None]
  - HYPERLIPIDAEMIA [None]
  - HYPERTENSION [None]
  - ILL-DEFINED DISORDER [None]
  - TYPE 2 DIABETES MELLITUS [None]
